FAERS Safety Report 16473802 (Version 1)
Quarter: 2019Q2

REPORT INFORMATION
  Report Type: Spontaneous
  Country: GB (occurrence: US)
  Receive Date: 20190625
  Receipt Date: 20190625
  Transmission Date: 20190711
  Serious: Yes (Death)
  Sender: FDA-Public Use
  Company Number: GB-PFIZER INC-2019270542

PATIENT
  Age: 18 Year
  Sex: Female

DRUGS (3)
  1. XANAX [Suspect]
     Active Substance: ALPRAZOLAM
     Indication: MOOD SWINGS
     Dosage: UNK
  2. XANAX [Suspect]
     Active Substance: ALPRAZOLAM
     Indication: ANXIETY
  3. METHADONE [Suspect]
     Active Substance: METHADONE HYDROCHLORIDE

REACTIONS (3)
  - Abnormal behaviour [Unknown]
  - Overdose [Fatal]
  - Drug ineffective [Unknown]
